FAERS Safety Report 5157297-2 (Version None)
Quarter: 2006Q4

REPORT INFORMATION
  Report Type: 
  Country: None (occurrence: None)
  Receive Date: 20061127
  Receipt Date: 20061116
  Transmission Date: 20070319
  Serious: Yes (Other)
  Sender: FDA-Public Use
  Company Number: PHEH2006US14379

PATIENT
  Sex: Female

DRUGS (1)
  1. ZOMETA [Suspect]
     Dosage: ^FOR A COUPLE OF YEARS^

REACTIONS (3)
  - IMPAIRED HEALING [None]
  - JAW DISORDER [None]
  - TOOTH EXTRACTION [None]
